FAERS Safety Report 4978041-5 (Version None)
Quarter: 2006Q2

REPORT INFORMATION
  Report Type: 
  Country: None (occurrence: None)
  Receive Date: 20060414
  Receipt Date: 20060403
  Transmission Date: 20061013
  Serious: Yes (Other)
  Sender: FDA-Public Use
  Company Number: L06-MAR-01331-01

PATIENT
  Age: 16 Year
  Sex: Female

DRUGS (2)
  1. LEVOTHYROXINE SODIUM [Suspect]
     Indication: HYPOTHYROIDISM
     Dosage: UNK
  2. LEVOTHYROXINE SODIUM [Suspect]
     Indication: THYROID NEOPLASM
     Dosage: UNK

REACTIONS (6)
  - AGGRESSION [None]
  - EUPHORIC MOOD [None]
  - INSOMNIA [None]
  - IRRITABILITY [None]
  - LOGORRHOEA [None]
  - MANIA [None]
